FAERS Safety Report 9980973 (Version 1)
Quarter: 2014Q1

REPORT INFORMATION
  Report Type: Spontaneous
  Country: US (occurrence: US)
  Receive Date: 20140307
  Receipt Date: 20140307
  Transmission Date: 20141002
  Serious: No
  Sender: FDA-Public Use
  Company Number: US-GLAXOSMITHKLINE-A1053409A

PATIENT
  Sex: Male

DRUGS (1)
  1. ROPINIROLE [Suspect]
     Indication: RESTLESS LEGS SYNDROME
     Dosage: 1MG VARIABLE DOSE
     Route: 048
     Dates: start: 2012

REACTIONS (5)
  - Muscle spasticity [Not Recovered/Not Resolved]
  - Dyskinesia [Unknown]
  - Somnolence [Unknown]
  - Excoriation [Unknown]
  - Nausea [Unknown]
